FAERS Safety Report 4337793-8 (Version None)
Quarter: 2004Q2

REPORT INFORMATION
  Report Type: 
  Country: None (occurrence: None)
  Receive Date: 20040408
  Receipt Date: 20040330
  Transmission Date: 20050107
  Serious: Yes (Other)
  Sender: FDA-Public Use
  Company Number: 200310481BYL

PATIENT
  Age: 35 Year
  Sex: Female

DRUGS (1)
  1. ASPIRIN [Suspect]
     Dosage: ORAL
     Route: 048
     Dates: start: 20020801

REACTIONS (1)
  - TOXIC EPIDERMAL NECROLYSIS [None]
